FAERS Safety Report 8391678-9 (Version None)
Quarter: 2012Q1

REPORT INFORMATION
  Report Type: 
  Country: None (occurrence: None)
  Receive Date: 20120323
  Receipt Date: 20111007
  Transmission Date: 20120608
  Serious: Yes (Hospitalization)
  Sender: FDA-Public Use
  Company Number: 163-21880-11023252

PATIENT
  Age: 77 Year
  Sex: Female

DRUGS (28)
  1. ASPIRIN [Concomitant]
  2. CITALOPRAM HYDROBROMIDE [Concomitant]
  3. NATURAL VEGETABLE POWDER (OTHER NUTRIENTS) [Concomitant]
  4. VALACYCLOVIR HCL (VALACICLOVIR HYDROCHLORIDE) [Concomitant]
  5. LORAZEPAM [Concomitant]
  6. ADVAIR HFA [Concomitant]
  7. FUROSEMIDE [Concomitant]
  8. FLUVIRIN (INFLUENZA VIRUS VACCINE POLYVALENT) [Concomitant]
  9. METFORMIN HCL [Concomitant]
  10. ATENOLOL [Concomitant]
  11. ACETAMINOPHEN [Concomitant]
  12. HYDROMORPHONE HCL [Concomitant]
  13. FLUTICASONE PROPIONATE/SALMETEROL [Concomitant]
  14. ASCORBIC ACID [Concomitant]
  15. DEXAMETHASONE [Concomitant]
  16. COUMADIN [Concomitant]
  17. REVLIMID [Suspect]
     Indication: MULTIPLE MYELOMA
     Dosage: 10 MG, QD ON DAYS 1-21, PO
     Route: 048
     Dates: start: 20100916
  18. DAILY VITAMIN (DAILY VITAMINS) [Concomitant]
  19. NORVASC [Concomitant]
  20. PRAVASTATIN SODIUM [Concomitant]
  21. LEVALBUTEROL HCL (LEVOSALBUTAMOL HYDROCHLORIDE) [Concomitant]
  22. ASTEPRO (AZELASTINE HYDROCHLORIDE) [Concomitant]
  23. OMEPRAZOLE [Concomitant]
  24. FOLIC ACID [Concomitant]
  25. GLIMEPIRIDE [Concomitant]
  26. ADVAIR DISKUS 100/50 [Concomitant]
  27. POTASSIUM CHLORIDE [Concomitant]
  28. NYSTATIN [Concomitant]

REACTIONS (3)
  - PNEUMONIA [None]
  - ANAEMIA [None]
  - CHRONIC OBSTRUCTIVE PULMONARY DISEASE [None]
